FAERS Safety Report 4700482-1 (Version None)
Quarter: 2005Q2

REPORT INFORMATION
  Report Type: 
  Country: None (occurrence: None)
  Receive Date: 20050627
  Receipt Date: 20050621
  Transmission Date: 20051028
  Serious: Yes (Death)
  Sender: FDA-Public Use
  Company Number: 2005PK01069

PATIENT
  Age: 36 Year
  Sex: Male

DRUGS (1)
  1. SEROQUEL [Suspect]
     Indication: DELUSIONAL DISORDER, PERSECUTORY TYPE
     Dosage: 1 TO 4 TABLETS PER DAY
     Route: 048
     Dates: start: 20050314

REACTIONS (2)
  - SUDDEN CARDIAC DEATH [None]
  - SUDDEN DEATH [None]
